FAERS Safety Report 9058240 (Version 1)
Quarter: 2013Q1

REPORT INFORMATION
  Report Type: Spontaneous
  Country: US (occurrence: None)
  Receive Date: 20130204
  Receipt Date: 20130204
  Transmission Date: 20140127
  Serious: No
  Sender: FDA-Public Use
  Company Number: None

PATIENT
  Age: 5 Month
  Sex: Male

DRUGS (1)
  1. CEFTRIAXONE [Suspect]
     Indication: PATHOGEN RESISTANCE
     Route: 030
     Dates: start: 20130110, end: 20130111

REACTIONS (2)
  - Erythema [None]
  - Erythema [None]
